FAERS Safety Report 10847951 (Version 1)
Quarter: 2015Q1

REPORT INFORMATION
  Report Type: Spontaneous
  Country: US (occurrence: US)
  Receive Date: 20150220
  Receipt Date: 20150220
  Transmission Date: 20150721
  Serious: No
  Sender: FDA-Public Use
  Company Number: US-CELGENEUS-163-21880-14030452

PATIENT
  Age: 66 Year
  Sex: Female
  Weight: 97.5 kg

DRUGS (1)
  1. REVLIMID [Suspect]
     Active Substance: LENALIDOMIDE
     Indication: PLASMA CELL MYELOMA
     Dosage: 15 MILLIGRAM
     Route: 048
     Dates: start: 20140221

REACTIONS (3)
  - Radiation skin injury [Unknown]
  - Dysphagia [Unknown]
  - Pain [Unknown]

NARRATIVE: CASE EVENT DATE: 20140303
